FAERS Safety Report 8722335 (Version 3)
Quarter: 2012Q4

REPORT INFORMATION
  Report Type: 
  Country: US (occurrence: US)
  Receive Date: 20120814
  Receipt Date: 20121130
  Transmission Date: 20130627
  Serious: Yes (Hospitalization, Other)
  Sender: FDA-Public Use
  Company Number: US-009507513-1208USA001925

PATIENT

DRUGS (5)
  1. FOSAMAX [Suspect]
     Indication: OSTEOPOROSIS
     Dosage: 70 mg, qw
     Route: 048
     Dates: start: 20011121, end: 20060123
  2. ACTONEL [Suspect]
     Indication: OSTEOPOROSIS
     Dosage: 35 mg, UNK
     Route: 048
     Dates: start: 20060123, end: 20070625
  3. BONIVA [Suspect]
     Indication: OSTEOPOROSIS
     Dosage: 150 mg, UNK
     Route: 048
     Dates: start: 20070625, end: 20101021
  4. ASCORBIC ACID [Concomitant]
     Dosage: UNK
     Dates: start: 2000, end: 2010
  5. AMITRIPTYLINE HYDROCHLORIDE [Concomitant]
     Dosage: UNK
     Dates: start: 1989

REACTIONS (25)
  - Femur fracture [Unknown]
  - Open reduction of fracture [Unknown]
  - Low turnover osteopathy [Unknown]
  - Depression [Unknown]
  - Bone lesion [Unknown]
  - Glucose tolerance impaired [Unknown]
  - Fibromyalgia [Unknown]
  - Scapula fracture [Unknown]
  - Ankle fracture [Unknown]
  - Breast haemorrhage [Unknown]
  - Diverticulum intestinal [Unknown]
  - Colon adenoma [Unknown]
  - Cardiac murmur [Unknown]
  - Fall [Unknown]
  - Gastrointestinal haemorrhage [Unknown]
  - Fall [Unknown]
  - Arthritis [Unknown]
  - Fibula fracture [Unknown]
  - Bladder repair [Unknown]
  - Intervertebral disc degeneration [Unknown]
  - Facet joint syndrome [Unknown]
  - Hypercholesterolaemia [Unknown]
  - Dysthymic disorder [Unknown]
  - Pain in extremity [Unknown]
  - Muscle spasms [Unknown]
